FAERS Safety Report 18197524 (Version 2)
Quarter: 2020Q3

REPORT INFORMATION
  Report Type: Spontaneous
  Country: TR (occurrence: TR)
  Receive Date: 20200826
  Receipt Date: 20200828
  Transmission Date: 20201103
  Serious: Yes (Life-Threatening, Other)
  Sender: FDA-Public Use
  Company Number: TR-ASTRAZENECA-2020SF06516

PATIENT
  Age: 59 Year
  Sex: Female
  Weight: 50 kg

DRUGS (2)
  1. IRESSA [Suspect]
     Active Substance: GEFITINIB
     Route: 048
     Dates: start: 201909
  2. KEPPRA [Concomitant]
     Active Substance: LEVETIRACETAM
     Indication: CEREBRAL DISORDER
     Route: 065
     Dates: start: 202006

REACTIONS (4)
  - Speech disorder [Unknown]
  - Malignant neoplasm progression [Unknown]
  - Gait disturbance [Unknown]
  - Non-small cell lung cancer recurrent [Unknown]

NARRATIVE: CASE EVENT DATE: 202006
